FAERS Safety Report 10675446 (Version 1)
Quarter: 2014Q4

REPORT INFORMATION
  Report Type: Spontaneous
  Country: US (occurrence: US)
  Receive Date: 20141224
  Receipt Date: 20141224
  Transmission Date: 20150529
  Serious: Yes (Other)
  Sender: FDA-Public Use
  Company Number: US-GLAXOSMITHKLINE-B0997125A

PATIENT

DRUGS (3)
  1. LEVALBUTEROL [Concomitant]
     Active Substance: LEVALBUTEROL
     Indication: ASTHMA
  2. FLUTICASONE [Suspect]
     Active Substance: FLUTICASONE\FLUTICASONE PROPIONATE
     Indication: ASTHMA
     Route: 055
  3. IPRATROPIUM BROMIDE. [Concomitant]
     Active Substance: IPRATROPIUM BROMIDE
     Indication: ASTHMA

REACTIONS (5)
  - Fatigue [Unknown]
  - Adrenal insufficiency [Unknown]
  - Weight increased [Unknown]
  - Blood corticotrophin decreased [Unknown]
  - Blood cortisol decreased [Unknown]
